FAERS Safety Report 8773247 (Version 2)
Quarter: 2012Q4

REPORT INFORMATION
  Report Type: 
  Country: US (occurrence: US)
  Receive Date: 20120907
  Receipt Date: 20121017
  Transmission Date: 20130627
  Serious: Yes (Hospitalization, Other)
  Sender: FDA-Public Use
  Company Number: US-ROCHE-CID000000002130200

PATIENT
  Sex: Female

DRUGS (1)
  1. AVASTIN [Suspect]
     Indication: PRODUCT USED FOR UNKNOWN INDICATION
     Dosage: 2.5 mg/0.1ml
     Route: 050

REACTIONS (11)
  - Conjunctivitis [Unknown]
  - Periorbital cellulitis [Unknown]
  - Diplopia [Unknown]
  - Optic atrophy [Unknown]
  - Visual field defect [Unknown]
  - Myopia [Unknown]
  - Refraction disorder [Unknown]
  - Vitreous detachment [Unknown]
  - Dry eye [Unknown]
  - Presbyopia [Unknown]
  - Visual acuity reduced [Unknown]
